FAERS Safety Report 12497316 (Version 2)
Quarter: 2016Q3

REPORT INFORMATION
  Report Type: Spontaneous
  Country: JP (occurrence: JP)
  Receive Date: 20160624
  Receipt Date: 20160705
  Transmission Date: 20161109
  Serious: Yes (Hospitalization, Other)
  Sender: FDA-Public Use
  Company Number: JP-PFIZER INC-2016186444

PATIENT
  Age: 76 Year
  Sex: Female
  Weight: 57.5 kg

DRUGS (2)
  1. CEFTRIAXONE SODIUM. [Suspect]
     Active Substance: CEFTRIAXONE SODIUM
     Indication: SUBCUTANEOUS ABSCESS
     Dosage: 2 G, DAILY
  2. PIPERACILLIN/TAZOBACTAM [Concomitant]
     Active Substance: PIPERACILLIN SODIUM\TAZOBACTAM SODIUM
     Indication: SUBCUTANEOUS ABSCESS
     Dosage: UNK

REACTIONS (1)
  - Cholelithiasis [Recovered/Resolved]
